FAERS Safety Report 23793667 (Version 1)
Quarter: 2024Q2

REPORT INFORMATION
  Report Type: Spontaneous
  Country: US (occurrence: None)
  Receive Date: 20240426
  Receipt Date: 20240426
  Transmission Date: 20240715
  Serious: No
  Sender: FDA-Public Use
  Company Number: None

PATIENT
  Age: 44 Year
  Sex: Male

DRUGS (1)
  1. AUSTEDO [Suspect]
     Active Substance: DEUTETRABENAZINE
     Indication: Tardive dyskinesia
     Dosage: OTHER QUANTITY : 1 TABLET;?FREQUENCY : TWICE A DAY;?
     Route: 048
     Dates: start: 20240204, end: 20240417

REACTIONS (1)
  - Sedation [None]

NARRATIVE: CASE EVENT DATE: 20240417
